FAERS Safety Report 7327258-3 (Version None)
Quarter: 2011Q1

REPORT INFORMATION
  Report Type: 
  Country: None (occurrence: None)
  Receive Date: 20110302
  Receipt Date: 20110217
  Transmission Date: 20110831
  Serious: Yes (Death)
  Sender: FDA-Public Use
  Company Number: NO-WATSON-2009-12387

PATIENT
  Sex: Female

DRUGS (5)
  1. WARFARIN [Suspect]
     Indication: PULMONARY EMBOLISM
  2. ASPIRIN [Suspect]
     Indication: TRANSIENT ISCHAEMIC ATTACK
     Dosage: 75 MG, DAILY
     Dates: start: 19980101
  3. SIMVASTATIN [Suspect]
     Indication: HYPERLIPIDAEMIA
     Dosage: 10 MG, DAILY
     Route: 065
     Dates: start: 20060301
  4. ASPIRIN [Suspect]
     Indication: CEREBRAL INFARCTION
  5. WARFARIN [Suspect]
     Indication: DEEP VEIN THROMBOSIS
     Dosage: 2 1/2 MG, DAILY
     Route: 048

REACTIONS (10)
  - INTERNATIONAL NORMALISED RATIO INCREASED [None]
  - CONTUSION [None]
  - DRUG INTERACTION [None]
  - CEREBRAL HAEMORRHAGE [None]
  - EPISTAXIS [None]
  - RESPIRATORY ARREST [None]
  - CONSTIPATION [None]
  - BLOOD PRESSURE INCREASED [None]
  - LOSS OF CONSCIOUSNESS [None]
  - BRAIN MIDLINE SHIFT [None]
